FAERS Safety Report 9691334 (Version 1)
Quarter: 2013Q4

REPORT INFORMATION
  Report Type: Spontaneous
  Country: DK (occurrence: DK)
  Receive Date: 20131115
  Receipt Date: 20131115
  Transmission Date: 20140711
  Serious: Yes (Hospitalization)
  Sender: FDA-Public Use
  Company Number: DK-ABBVIE-13P-044-1168239-00

PATIENT
  Age: 18 Year
  Sex: Female
  Weight: 63 kg

DRUGS (2)
  1. HUMIRA [Suspect]
     Indication: CROHN^S DISEASE
     Dates: start: 20130518, end: 20130904
  2. UNSPECIFIED IRON [Concomitant]
     Indication: BLOOD IRON DECREASED
     Dates: start: 2013

REACTIONS (2)
  - Dermatitis psoriasiform [Not Recovered/Not Resolved]
  - Pancreatitis [Not Recovered/Not Resolved]
